FAERS Safety Report 6638306-8 (Version None)
Quarter: 2010Q1

REPORT INFORMATION
  Report Type: 
  Country: None (occurrence: None)
  Receive Date: 20100317
  Receipt Date: 20100308
  Transmission Date: 20100710
  Serious: Yes (Hospitalization, Other)
  Sender: FDA-Public Use
  Company Number: BR-ASTRAZENECA-2010SE10129

PATIENT
  Age: 81 Year
  Sex: Female
  Weight: 47 kg

DRUGS (7)
  1. OMEPRAZOLE [Suspect]
     Dosage: 1 TABLET/OD
     Route: 048
     Dates: start: 19990101
  2. CRESTOR [Suspect]
     Indication: HYPERCHOLESTEROLAEMIA
     Route: 048
     Dates: start: 20050101, end: 20100101
  3. CRESTOR [Suspect]
     Route: 048
     Dates: start: 20100101
  4. SEROQUEL [Suspect]
     Indication: DEMENTIA
     Route: 048
     Dates: start: 20100201
  5. SEROQUEL [Suspect]
     Route: 048
  6. SEROQUEL [Suspect]
     Route: 048
  7. SEROQUEL [Suspect]
     Route: 048

REACTIONS (6)
  - AGGRESSION [None]
  - CEREBROVASCULAR ACCIDENT [None]
  - DEMENTIA [None]
  - HYPERCHOLESTEROLAEMIA [None]
  - INSOMNIA [None]
  - OFF LABEL USE [None]
